FAERS Safety Report 4842866-7 (Version None)
Quarter: 2005Q4

REPORT INFORMATION
  Report Type: 
  Country: None (occurrence: None)
  Receive Date: 20051130
  Receipt Date: 20051027
  Transmission Date: 20060501
  Serious: Yes (Other)
  Sender: FDA-Public Use
  Company Number: SGB1-2005-00562

PATIENT

DRUGS (1)
  1. MIDODRINE HCL [Suspect]
     Indication: ORTHOSTATIC HYPOTENSION

REACTIONS (1)
  - FALL [None]
